FAERS Safety Report 7093002-0 (Version None)
Quarter: 2010Q4

REPORT INFORMATION
  Report Type: 
  Country: None (occurrence: None)
  Receive Date: 20101110
  Receipt Date: 20101104
  Transmission Date: 20110411
  Serious: Yes (Death, Life-Threatening)
  Sender: FDA-Public Use
  Company Number: PHHY2010IN74376

PATIENT
  Age: 69 Year
  Sex: Male

DRUGS (2)
  1. AFINITOR [Suspect]
     Indication: ADRENOCORTICAL CARCINOMA
     Dosage: UNK
     Route: 048
     Dates: start: 20100327
  2. AFINITOR [Suspect]
     Dosage: TWO TABLETS A WEEK
     Route: 048

REACTIONS (10)
  - ASTHENIA [None]
  - BLOOD GLUCOSE INCREASED [None]
  - DEATH [None]
  - DECREASED APPETITE [None]
  - DIARRHOEA [None]
  - DYSGEUSIA [None]
  - HEART RATE ABNORMAL [None]
  - METASTASES TO LIVER [None]
  - MOUTH ULCERATION [None]
  - SUPRAVENTRICULAR TACHYCARDIA [None]
